FAERS Safety Report 5388780-2 (Version None)
Quarter: 2007Q3

REPORT INFORMATION
  Report Type: 
  Country: None (occurrence: None)
  Receive Date: 20070712
  Receipt Date: 20070702
  Transmission Date: 20080115
  Serious: Yes (Other)
  Sender: FDA-Public Use
  Company Number: APP200700200

PATIENT
  Age: 24 Year
  Sex: Female

DRUGS (2)
  1. CHORIONIC GONADORTOPIN INJ [Suspect]
     Indication: INFERTILITY
  2. FOLLISTIM [Concomitant]

REACTIONS (2)
  - ABORTION SPONTANEOUS [None]
  - DRUG EXPOSURE DURING PREGNANCY [None]
